FAERS Safety Report 5329018-1 (Version None)
Quarter: 2007Q2

REPORT INFORMATION
  Report Type: 
  Country: None (occurrence: None)
  Receive Date: 20070518
  Receipt Date: 20070507
  Transmission Date: 20071010
  Serious: Yes (Hospitalization, Other)
  Sender: FDA-Public Use
  Company Number: US-PFIZER INC-2005092321

PATIENT
  Age: 48 Year
  Sex: Male

DRUGS (1)
  1. NEURONTIN [Suspect]
     Indication: BIPOLAR DISORDER

REACTIONS (5)
  - DEPRESSION [None]
  - DISTURBANCE IN SOCIAL BEHAVIOUR [None]
  - DRUG INEFFECTIVE [None]
  - MANIA [None]
  - SUICIDE ATTEMPT [None]
